FAERS Safety Report 9305978 (Version 2)
Quarter: 2013Q3

REPORT INFORMATION
  Report Type: Spontaneous
  Country: US (occurrence: None)
  Receive Date: 20130213
  Receipt Date: 20130815
  Transmission Date: 20140515
  Serious: Yes (Hospitalization, Other)
  Sender: FDA-Public Use
  Company Number: ADR-2012-01262

PATIENT
  Sex: Female

DRUGS (3)
  1. LIORESAL INTRATHECAL (BACLOFEN INJECTION) [Suspect]
     Indication: PAIN
  2. FENTANYL [Concomitant]
  3. CLONIDINE [Concomitant]

REACTIONS (12)
  - Drug withdrawal syndrome [None]
  - Respiratory disorder [None]
  - Pulmonary oedema [None]
  - Hypertension [None]
  - Tachycardia [None]
  - Device dislocation [None]
  - Wrong technique in drug usage process [None]
  - Implant site erosion [None]
  - Implant site infection [None]
  - Device extrusion [None]
  - Allergy to metals [None]
  - Skin disorder [None]
